FAERS Safety Report 6925268-9 (Version None)
Quarter: 2010Q3

REPORT INFORMATION
  Report Type: 
  Country: None (occurrence: None)
  Receive Date: 20100811
  Receipt Date: 20100730
  Transmission Date: 20110219
  Serious: Yes (Other)
  Sender: FDA-Public Use
  Company Number: 2010GW000605

PATIENT
  Age: 56 Year
  Sex: Male

DRUGS (2)
  1. MAXAIR [Suspect]
     Indication: DYSPNOEA
     Dosage: 200 UG;PRN;INH
     Route: 055
  2. RETIN-A [Concomitant]

REACTIONS (8)
  - CHEST PAIN [None]
  - COELIAC DISEASE [None]
  - CONTUSION [None]
  - CORONARY ARTERIAL STENT INSERTION [None]
  - FAT TISSUE INCREASED [None]
  - FEELING ABNORMAL [None]
  - INJECTION SITE HAEMATOMA [None]
  - PANCREATIC DISORDER [None]
